FAERS Safety Report 12669526 (Version 1)
Quarter: 2016Q3

REPORT INFORMATION
  Report Type: Spontaneous
  Country: DE (occurrence: DE)
  Receive Date: 20160819
  Receipt Date: 20160819
  Transmission Date: 20161109
  Serious: Yes (Death, Hospitalization)
  Sender: FDA-Public Use
  Company Number: GXKR2016DE003858

PATIENT

DRUGS (1)
  1. METFORMIN [Suspect]
     Active Substance: METFORMIN HYDROCHLORIDE
     Indication: DIABETES MELLITUS
     Dosage: 1000MG, 1-0-1
     Route: 048
     Dates: start: 20160713, end: 20160812

REACTIONS (5)
  - Melaena [Unknown]
  - Cardiac arrest [Unknown]
  - Diarrhoea [Unknown]
  - Lactic acidosis [Fatal]
  - Coma [Unknown]

NARRATIVE: CASE EVENT DATE: 20160813
